FAERS Safety Report 11360022 (Version 4)
Quarter: 2016Q1

REPORT INFORMATION
  Report Type: Report from Study
  Country: BR (occurrence: BR)
  Receive Date: 20150810
  Receipt Date: 20160308
  Transmission Date: 20160525
  Serious: Yes (Hospitalization, Other)
  Sender: FDA-Public Use
  Company Number: BR-ROCHE-1081513

PATIENT
  Age: 34 Year
  Sex: Female
  Weight: 66 kg

DRUGS (4)
  1. FLEBOCORTID [Concomitant]
     Active Substance: HYDROCORTISONE SODIUM SUCCINATE
     Indication: PREMEDICATION
  2. TYLENOL [Concomitant]
     Active Substance: ACETAMINOPHEN
     Indication: PREMEDICATION
     Route: 065
  3. BENADRYL (BRAZIL) [Concomitant]
     Active Substance: DIPHENHYDRAMINE HYDROCHLORIDE
     Indication: PREMEDICATION
  4. MABTHERA [Suspect]
     Active Substance: RITUXIMAB
     Indication: RHEUMATOID ARTHRITIS
     Dosage: ON 02/JUN/2014, THE PATIENT RECEIVED LATEST INFUSION OF RITUXIMAB.
     Route: 042
     Dates: start: 20091101

REACTIONS (11)
  - Hypotension [Not Recovered/Not Resolved]
  - Impaired healing [Not Recovered/Not Resolved]
  - Anal fistula [Unknown]
  - Herpes virus infection [Unknown]
  - Headache [Unknown]
  - Pain [Recovered/Resolved]
  - Female genital tract fistula [Not Recovered/Not Resolved]
  - Urinary tract infection [Not Recovered/Not Resolved]
  - White blood cell count decreased [Unknown]
  - Immunodeficiency [Unknown]
  - Fistula [Not Recovered/Not Resolved]

NARRATIVE: CASE EVENT DATE: 20111117
